FAERS Safety Report 9772663 (Version 2)
Quarter: 2014Q1

REPORT INFORMATION
  Report Type: Spontaneous
  Country: FR (occurrence: FR)
  Receive Date: 20131219
  Receipt Date: 20140103
  Transmission Date: 20141002
  Serious: Yes (Other)
  Sender: FDA-Public Use
  Company Number: FR-PFIZER INC-2013360272

PATIENT
  Age: 77 Year
  Sex: Male
  Weight: 80 kg

DRUGS (3)
  1. LYRICA [Suspect]
     Indication: GLOSSODYNIA
     Dosage: 50 MG, UNK
     Route: 048
     Dates: start: 20131119, end: 20131202
  2. COTAREG [Concomitant]
     Indication: ESSENTIAL HYPERTENSION
     Dosage: UNK
  3. DOXAZOSINE [Concomitant]
     Indication: BENIGN PROSTATIC HYPERPLASIA
     Dosage: 4 MG, 1X/DAY

REACTIONS (4)
  - Off label use [Unknown]
  - Anxiety [Recovering/Resolving]
  - Panic attack [Recovering/Resolving]
  - Insomnia [Recovering/Resolving]
